FAERS Safety Report 4317048-8 (Version None)
Quarter: 2004Q1

REPORT INFORMATION
  Report Type: 
  Country: None (occurrence: None)
  Receive Date: 20040312
  Receipt Date: 20040226
  Transmission Date: 20041129
  Serious: Yes (Hospitalization)
  Sender: FDA-Public Use
  Company Number: 2003IM000457

PATIENT
  Age: 59 Year
  Sex: Female
  Weight: 70.3075 kg

DRUGS (10)
  1. ACTIMMUNE [Suspect]
     Indication: INTERSTITIAL LUNG DISEASE
     Dosage: 200 UG; TIW; SUBCUTANEOUS
     Route: 058
     Dates: start: 20021230
  2. PREDNISONE [Concomitant]
  3. ESTRADIOL [Concomitant]
  4. PREVACID [Concomitant]
  5. ACETAMINOPHEN [Concomitant]
  6. FLONASE [Concomitant]
  7. CLARITIN [Concomitant]
  8. FOSAMAX [Concomitant]
  9. MULTI-VITAMINS [Concomitant]
  10. VITAMIN E [Concomitant]

REACTIONS (1)
  - PNEUMONIA [None]
